FAERS Safety Report 16916992 (Version 1)
Quarter: 2019Q4

REPORT INFORMATION
  Report Type: Spontaneous
  Country: US (occurrence: US)
  Receive Date: 20191015
  Receipt Date: 20191015
  Transmission Date: 20200122
  Serious: No
  Sender: FDA-Public Use
  Company Number: US-JNJFOC-20191018004

PATIENT
  Sex: Female
  Weight: 53.57 kg

DRUGS (1)
  1. MENS ROGAINE EXTRA STRENGTH [Suspect]
     Active Substance: MINOXIDIL
     Indication: ALOPECIA
     Dosage: WHAT WAS IN THE DIRECTIONS ONCE A DAY
     Route: 061

REACTIONS (3)
  - Alopecia [Not Recovered/Not Resolved]
  - Off label use [Unknown]
  - Product use issue [Unknown]
